FAERS Safety Report 21394798 (Version 1)
Quarter: 2022Q3

REPORT INFORMATION
  Report Type: Spontaneous
  Country: DE (occurrence: DE)
  Receive Date: 20220930
  Receipt Date: 20220930
  Transmission Date: 20221027
  Serious: Yes (Hospitalization, Other)
  Sender: FDA-Public Use
  Company Number: DE-ADRED-07412-01

PATIENT
  Age: 83 Year
  Sex: Male
  Weight: 68 kg

DRUGS (12)
  1. CLOPIDOGREL [Suspect]
     Active Substance: CLOPIDOGREL BISULFATE
     Indication: Product used for unknown indication
     Dosage: 75 MILLIGRAM, DAILY, 0-1-0-0
     Route: 048
  2. RIVAROXABAN [Suspect]
     Active Substance: RIVAROXABAN
     Indication: Product used for unknown indication
     Dosage: 15 MILLIGRAM, DAILY, 1-0-0-0
     Route: 048
  3. GABAPENTIN [Concomitant]
     Active Substance: GABAPENTIN
     Indication: Product used for unknown indication
     Dosage: 900 MILLIGRAM, DAILY, 300 MG 1-1-1-0
     Route: 048
  4. TORSEMIDE [Concomitant]
     Active Substance: TORSEMIDE
     Indication: Product used for unknown indication
     Dosage: 10 MILLIGRAM, DAILY, 1-0-0-0
     Route: 048
  5. PANTOPRAZOLE SODIUM [Concomitant]
     Active Substance: PANTOPRAZOLE SODIUM
     Indication: Product used for unknown indication
     Dosage: 40 MILLIGRAM, DAILY, 1-0-0-0
     Route: 048
  6. NITRENDIPINE [Concomitant]
     Active Substance: NITRENDIPINE
     Indication: Product used for unknown indication
     Dosage: 40 MILLIGRAM, 1DOSE/1HOUR, 20 MG 1-0-1-0
     Route: 048
  7. EPLERENONE [Concomitant]
     Active Substance: EPLERENONE
     Indication: Product used for unknown indication
     Dosage: 50 MILLIGRAM, DAILY, 1-0-0-0
     Route: 048
  8. URAPIDIL HYDROCHLORIDE [Concomitant]
     Active Substance: URAPIDIL HYDROCHLORIDE
     Indication: Product used for unknown indication
     Dosage: 180 MILLIGRAM, DAILY, 60 MG 1-0-1-1
     Route: 048
  9. ATORVASTATIN [Concomitant]
     Active Substance: ATORVASTATIN
     Indication: Product used for unknown indication
     Dosage: 40 MILLIGRAM, DAILY, 0-0-1-0
     Route: 048
  10. BISOPROLOL [Concomitant]
     Active Substance: BISOPROLOL
     Indication: Product used for unknown indication
     Dosage: 5 MILLIGRAM, DAILY, 1-0-1-0
     Route: 048
  11. TROSPIUM [Concomitant]
     Active Substance: TROSPIUM
     Indication: Product used for unknown indication
     Dosage: 30 MILLIGRAM, DAILY, 1-0-0-0
     Route: 048
  12. CANDESARTAN [Concomitant]
     Active Substance: CANDESARTAN
     Indication: Product used for unknown indication
     Dosage: 32 MILLIGRAM, DAILY, 1-0-0-0
     Route: 048

REACTIONS (12)
  - Syncope [Unknown]
  - Anaemia [Unknown]
  - General physical health deterioration [Unknown]
  - Gait disturbance [Unknown]
  - Fatigue [Unknown]
  - Diarrhoea [Unknown]
  - Hypotension [Unknown]
  - Dysstasia [Unknown]
  - Blood loss anaemia [Unknown]
  - Haematuria [Unknown]
  - Haematuria [Unknown]
  - Asthenia [Unknown]
